FAERS Safety Report 11344734 (Version 1)
Quarter: 2015Q3

REPORT INFORMATION
  Report Type: Report from Study
  Country: CN (occurrence: CN)
  Receive Date: 20150806
  Receipt Date: 20150806
  Transmission Date: 20151125
  Serious: Yes (Other)
  Sender: FDA-Public Use
  Company Number: CN-BAXALTA-2015BAX029107

PATIENT
  Age: 17 Year
  Weight: 52 kg

DRUGS (2)
  1. OCTOCOG ALFA; BAXJECT II [Suspect]
     Active Substance: ANTIHEMOPHILIC FACTOR, HUMAN RECOMBINANT
     Indication: HAEMOPHILIA
     Dosage: 500 IU, 2X A WEEK
     Route: 065
     Dates: start: 20131201
  2. OCTOCOG ALFA; BAXJECT II [Suspect]
     Active Substance: ANTIHEMOPHILIC FACTOR, HUMAN RECOMBINANT
     Indication: PROPHYLAXIS
     Dosage: 500 IU, 2-3 TIMES A WEEK, LOW DOSAGE PREVENTIVE TREATMENT
     Route: 065

REACTIONS (4)
  - Haemarthrosis [Recovered/Resolved]
  - Unevaluable event [Unknown]
  - Haemarthrosis [Unknown]
  - Haemorrhage [Recovered/Resolved]

NARRATIVE: CASE EVENT DATE: 201408
